FAERS Safety Report 18554945 (Version 1)
Quarter: 2020Q4

REPORT INFORMATION
  Report Type: Spontaneous
  Country: US (occurrence: US)
  Receive Date: 20201127
  Receipt Date: 20201127
  Transmission Date: 20210114
  Serious: Yes (Other)
  Sender: FDA-Public Use
  Company Number: US-PURDUE-USA-2020-0177787

PATIENT
  Sex: Male

DRUGS (2)
  1. OXYCONTIN [Suspect]
     Active Substance: OXYCODONE HYDROCHLORIDE
     Indication: PAIN
     Dosage: 400 MG, DAILY
     Route: 048
     Dates: start: 1994
  2. PERCOCET                           /00446701/ [Suspect]
     Active Substance: ACETAMINOPHEN\OXYCODONE HYDROCHLORIDE\OXYCODONE TEREPHTHALATE
     Indication: PAIN
     Dosage: UNKNOWN
     Route: 065
     Dates: start: 1989, end: 1996

REACTIONS (10)
  - Drug dependence [Unknown]
  - Tooth loss [Unknown]
  - Withdrawal syndrome [Unknown]
  - Asthenia [Unknown]
  - Constipation [Unknown]
  - Hypotension [Unknown]
  - Dry mouth [Unknown]
  - Dizziness [Unknown]
  - Confusional state [Unknown]
  - Cardiac failure [Unknown]
